FAERS Safety Report 6137690-1 (Version None)
Quarter: 2009Q1

REPORT INFORMATION
  Report Type: 
  Country: None (occurrence: None)
  Receive Date: 20090326
  Receipt Date: 20090317
  Transmission Date: 20090719
  Serious: Yes (Death, Hospitalization)
  Sender: FDA-Public Use
  Company Number: 2009EU000655

PATIENT
  Sex: Female
  Weight: 30 kg

DRUGS (5)
  1. PROGRAF [Suspect]
     Indication: RENAL TRANSPLANT
     Dosage: /D, ORAL
     Route: 048
     Dates: start: 20080301, end: 20090212
  2. MYFORTIC [Suspect]
     Indication: RENAL TRANSPLANT
     Dosage: 720 MG/D, ORAL
     Route: 048
  3. PREDNISOLONE [Suspect]
     Indication: RENAL TRANSPLANT
     Dosage: 5 MG, /D, ORAL
     Route: 048
  4. OMEZ (OMEPRAZOLE SODIUM) [Concomitant]
  5. ATENOLOL [Concomitant]

REACTIONS (5)
  - BRAIN OEDEMA [None]
  - CONDITION AGGRAVATED [None]
  - HEPATITIS [None]
  - PORTAL HYPERTENSION [None]
  - RENAL FAILURE CHRONIC [None]
